FAERS Safety Report 4476944-1 (Version None)
Quarter: 2004Q4

REPORT INFORMATION
  Report Type: 
  Country: None (occurrence: None)
  Receive Date: 20041012
  Receipt Date: 20041001
  Transmission Date: 20050328
  Serious: Yes (Hospitalization, Other)
  Sender: FDA-Public Use
  Company Number: KII-2004-0013531

PATIENT
  Age: 57 Year
  Sex: Female

DRUGS (5)
  1. MORPHINE SULFATE [Suspect]
     Indication: PAIN
     Dosage: ORAL
     Route: 048
  2. AMITRIPTYLINE HCL [Suspect]
     Dosage: ORAL
     Route: 048
  3. PHENCYCLIDINE (PHENCYCLIDINE) [Suspect]
  4. TETRAHYDROCANNABINOL (TETRAHYDROCANNABINOL) [Suspect]
  5. ACETAMINOPHEN [Suspect]

REACTIONS (23)
  - AGGRESSION [None]
  - AGITATION [None]
  - ALANINE AMINOTRANSFERASE INCREASED [None]
  - AMMONIA INCREASED [None]
  - ASPARTATE AMINOTRANSFERASE INCREASED [None]
  - BLOOD CREATINE PHOSPHOKINASE INCREASED [None]
  - BLOOD PH DECREASED [None]
  - BLOOD PRESSURE INCREASED [None]
  - COMA [None]
  - CYANOSIS [None]
  - DISORIENTATION [None]
  - DRUG WITHDRAWAL SYNDROME [None]
  - ELECTROCARDIOGRAM QRS COMPLEX PROLONGED [None]
  - HALLUCINATION [None]
  - HEART RATE INCREASED [None]
  - HEPATIC ENCEPHALOPATHY [None]
  - MULTIPLE DRUG OVERDOSE [None]
  - MYOGLOBIN BLOOD INCREASED [None]
  - PCO2 ABNORMAL [None]
  - PNEUMONIA ASPIRATION [None]
  - PUPILLARY REFLEX IMPAIRED [None]
  - RESPIRATORY DEPRESSION [None]
  - SINUS TACHYCARDIA [None]
